FAERS Safety Report 5463857-1 (Version None)
Quarter: 2007Q3

REPORT INFORMATION
  Report Type: 
  Country: None (occurrence: None)
  Receive Date: 20070816
  Receipt Date: 20070306
  Transmission Date: 20080115
  Serious: Yes (Hospitalization)
  Sender: FDA-Public Use
  Company Number: WAES 0704USA05579

PATIENT
  Age: 73 Year
  Sex: Male

DRUGS (4)
  1. INDOCIN [Suspect]
     Dosage: PO
     Route: 048
     Dates: start: 20041201, end: 20050114
  2. PLAVIX [Suspect]
     Indication: CORONARY ARTERY DISEASE
     Dates: start: 20041201, end: 20050114
  3. ASPIRIN [Suspect]
     Indication: CORONARY ARTERY DISEASE
     Dates: start: 20041201, end: 20050115
  4. ASPIRIN [Suspect]
     Indication: CORONARY ARTERY DISEASE
     Dates: start: 20050120

REACTIONS (1)
  - UPPER GASTROINTESTINAL HAEMORRHAGE [None]
